FAERS Safety Report 4643181-7 (Version None)
Quarter: 2005Q2

REPORT INFORMATION
  Report Type: 
  Country: None (occurrence: None)
  Receive Date: 20050421
  Receipt Date: 20041229
  Transmission Date: 20051028
  Serious: Yes (Hospitalization, Other)
  Sender: FDA-Public Use
  Company Number: 2005BI006614

PATIENT
  Age: 47 Year
  Sex: Male

DRUGS (1)
  1. AVONEX [Suspect]
     Indication: MULTIPLE SCLEROSIS
     Dosage: 30 UG; QW; IM
     Route: 030
     Dates: start: 20011001, end: 20020501

REACTIONS (8)
  - CAROTID ARTERY ATHEROMA [None]
  - CEREBRAL ATROPHY [None]
  - COORDINATION ABNORMAL [None]
  - DIFFICULTY IN WALKING [None]
  - MICROANGIOPATHY [None]
  - MUSCLE SPASTICITY [None]
  - PANENCEPHALITIS [None]
  - PRIMARY PROGRESSIVE MULTIPLE SCLEROSIS [None]
